FAERS Safety Report 12650651 (Version 1)
Quarter: 2016Q3

REPORT INFORMATION
  Report Type: Spontaneous
  Country: US (occurrence: None)
  Receive Date: 20160812
  Receipt Date: 20160812
  Transmission Date: 20161109
  Serious: Yes (Death)
  Sender: FDA-Public Use
  Company Number: None

PATIENT
  Age: 72 Year
  Sex: Female
  Weight: 73.5 kg

DRUGS (1)
  1. DOCETAXEL. [Suspect]
     Active Substance: DOCETAXEL

REACTIONS (7)
  - Anaemia [None]
  - Pneumonitis [None]
  - Pulmonary toxicity [None]
  - Therapy non-responder [None]
  - Leukocytosis [None]
  - Immunodeficiency [None]
  - Terminal state [None]

NARRATIVE: CASE EVENT DATE: 20150908
